FAERS Safety Report 9338508 (Version 1)
Quarter: 2013Q2

REPORT INFORMATION
  Report Type: Spontaneous
  Country: US (occurrence: None)
  Receive Date: 20130605
  Receipt Date: 20130605
  Transmission Date: 20140414
  Serious: Yes (Other)
  Sender: FDA-Public Use
  Company Number: None

PATIENT
  Age: 57 Year
  Sex: Female

DRUGS (1)
  1. STELARA [Suspect]
     Dosage: 90MG, Q90DAYS, SUB-Q
     Route: 058
     Dates: start: 20120830, end: 20130501

REACTIONS (2)
  - Drug ineffective [None]
  - Product substitution issue [None]
